FAERS Safety Report 6585444-4 (Version None)
Quarter: 2010Q1

REPORT INFORMATION
  Report Type: 
  Country: None (occurrence: None)
  Receive Date: 20100217
  Receipt Date: 20100205
  Transmission Date: 20100710
  Serious: Yes (Other)
  Sender: FDA-Public Use
  Company Number: B0633914A

PATIENT
  Sex: Female
  Weight: 65 kg

DRUGS (1)
  1. PAROXAT [Suspect]
     Indication: DRUG USE FOR UNKNOWN INDICATION
     Dosage: 20MG PER DAY
     Route: 048
     Dates: start: 20021217

REACTIONS (3)
  - DRUG EXPOSURE DURING PREGNANCY [None]
  - DRY MOUTH [None]
  - HELLP SYNDROME [None]
